FAERS Safety Report 4438733-3 (Version None)
Quarter: 2004Q3

REPORT INFORMATION
  Report Type: 
  Country: None (occurrence: None)
  Receive Date: 20040901
  Receipt Date: 20040820
  Transmission Date: 20050211
  Serious: Yes (Hospitalization)
  Sender: FDA-Public Use
  Company Number: 200413134FR

PATIENT
  Age: 80 Year
  Sex: Female
  Weight: 64 kg

DRUGS (6)
  1. CORTANCYL [Suspect]
     Indication: BREAST CANCER
     Route: 048
     Dates: start: 20040617, end: 20040619
  2. TAXOTERE [Suspect]
     Indication: BREAST CANCER
     Route: 042
     Dates: start: 20040618, end: 20040618
  3. ZOCOR [Concomitant]
  4. ASPIRIN [Concomitant]
  5. LASIX [Concomitant]
  6. COVERSYL [Concomitant]

REACTIONS (5)
  - LIVIDITY [None]
  - PARAESTHESIA [None]
  - PERIPHERAL ISCHAEMIA [None]
  - PULSE ABSENT [None]
  - VASCULAR BYPASS DYSFUNCTION [None]
